FAERS Safety Report 18145928 (Version 1)
Quarter: 2020Q3

REPORT INFORMATION
  Report Type: Report from Study
  Country: None (occurrence: US)
  Receive Date: 20200813
  Receipt Date: 20200813
  Transmission Date: 20201103
  Serious: Yes (Other)
  Sender: FDA-Public Use
  Company Number: US-ABBVIE-20K-163-3521524-00

PATIENT
  Sex: Female

DRUGS (1)
  1. HUMIRA [Suspect]
     Active Substance: ADALIMUMAB
     Indication: RHEUMATOID ARTHRITIS
     Dosage: CITRATE FREE
     Route: 058

REACTIONS (10)
  - Nausea [Recovering/Resolving]
  - Chest pain [Unknown]
  - Goitre [Not Recovered/Not Resolved]
  - Panic attack [Unknown]
  - Costochondritis [Unknown]
  - Adrenocortical insufficiency acute [Unknown]
  - Injection site rash [Recovering/Resolving]
  - Paraesthesia [Recovering/Resolving]
  - Rash [Not Recovered/Not Resolved]
  - Dizziness [Recovering/Resolving]
